FAERS Safety Report 4532141-2 (Version None)
Quarter: 2004Q4

REPORT INFORMATION
  Report Type: 
  Country: None (occurrence: None)
  Receive Date: 20041220
  Receipt Date: 20041111
  Transmission Date: 20050328
  Serious: Yes (Life-Threatening)
  Sender: FDA-Public Use
  Company Number: US-BRISTOL-MYERS SQUIBB COMPANY-12763405

PATIENT
  Age: 67 Year
  Sex: Male
  Weight: 68 kg

DRUGS (4)
  1. PARAPLATIN AQ [Suspect]
     Indication: NON-SMALL CELL LUNG CANCER
     Dosage: ADDITIONAL LOT #4F89061 EXP. 12/05
     Route: 042
     Dates: start: 20041025, end: 20041025
  2. GEMZAR [Concomitant]
     Indication: NON-SMALL CELL LUNG CANCER
     Dates: start: 20041025, end: 20041025
  3. ALOXI [Concomitant]
  4. DECADRON [Concomitant]

REACTIONS (4)
  - DYSPHAGIA [None]
  - FLUSHING [None]
  - HYPOAESTHESIA ORAL [None]
  - PRURITUS [None]
